APPROVED DRUG PRODUCT: PREDNISONE
Active Ingredient: PREDNISONE
Strength: 20MG
Dosage Form/Route: TABLET;ORAL
Application: A215672 | Product #004 | TE Code: AB
Applicant: AUROBINDO PHARMA LTD
Approved: Mar 28, 2022 | RLD: No | RS: No | Type: RX